FAERS Safety Report 21416896 (Version 3)
Quarter: 2023Q2

REPORT INFORMATION
  Report Type: Report from Study
  Country: ES (occurrence: ES)
  Receive Date: 20221006
  Receipt Date: 20230417
  Transmission Date: 20230721
  Serious: Yes (Hospitalization)
  Sender: FDA-Public Use
  Company Number: ES-JNJFOC-20220520267

PATIENT
  Age: 64 Year
  Sex: Female
  Weight: 59.7 kg

DRUGS (10)
  1. TECLISTAMAB [Suspect]
     Active Substance: TECLISTAMAB
     Indication: Plasma cell myeloma
     Dosage: 30 [10 MG/ML] VIAL; LAST DOSE OF 90 MG/ML GIVEN ON 26-APR-2022 (C3D15)?DOSE ALSO PROVIDED AS 2ML
     Route: 058
     Dates: start: 20220216, end: 20220310
  2. TECLISTAMAB [Suspect]
     Active Substance: TECLISTAMAB
     Route: 058
     Dates: start: 20220315, end: 20220426
  3. DARATUMUMAB [Suspect]
     Active Substance: DARATUMUMAB
     Indication: Plasma cell myeloma
     Dosage: C1D1; LAST DOSE GIVEN ON 26-APR-2022 (C3D15)?DOSE ALSO PROVIDED AS 15 ML
     Route: 058
     Dates: start: 20220215
  4. ERITROPOYETINA [ERYTHROPOIETIN HUMAN] [Concomitant]
     Indication: Anaemia prophylaxis
     Route: 042
     Dates: start: 20220112
  5. VITAMINS NOS [Concomitant]
     Active Substance: VITAMINS
     Indication: Vitamin supplementation
     Route: 048
  6. ACYCLOVIR [Concomitant]
     Active Substance: ACYCLOVIR
     Indication: Antiviral prophylaxis
     Route: 048
  7. LEVOTHYROXINE SODIUM [Concomitant]
     Active Substance: LEVOTHYROXINE SODIUM
     Indication: Hypothyroidism
     Route: 048
  8. OMEPRAZOLE [Concomitant]
     Active Substance: OMEPRAZOLE
     Indication: Gastrointestinal disorder therapy
     Route: 048
  9. CALCIUM\CHOLECALCIFEROL [Concomitant]
     Active Substance: CALCIUM\CHOLECALCIFEROL
     Indication: Mineral supplementation
     Route: 048
  10. ACETAMINOPHEN [Concomitant]
     Active Substance: ACETAMINOPHEN
     Indication: Pyrexia
     Route: 048
     Dates: start: 20220425, end: 20220425

REACTIONS (2)
  - Cytomegalovirus infection reactivation [Recovered/Resolved]
  - Pneumonia cytomegaloviral [Recovered/Resolved]

NARRATIVE: CASE EVENT DATE: 20220507
